FAERS Safety Report 9186169 (Version 1)
Quarter: 2013Q1

REPORT INFORMATION
  Report Type: Spontaneous
  Country: BR (occurrence: BR)
  Receive Date: 20130325
  Receipt Date: 20130325
  Transmission Date: 20140127
  Serious: Yes (Other)
  Sender: FDA-Public Use
  Company Number: BR-JNJFOC-20130310053

PATIENT
  Sex: Female
  Weight: 85 kg

DRUGS (4)
  1. NICORETTE [Suspect]
     Indication: SMOKING CESSATION THERAPY
     Dosage: 2-3 GUMS A DAY
     Route: 048
     Dates: start: 2010
  2. PRISTIQ [Concomitant]
     Route: 048
     Dates: start: 20130314
  3. METFORMINA [Concomitant]
     Route: 048
     Dates: start: 2011
  4. ESCITALOPRAM OXALATE [Concomitant]
     Route: 048
     Dates: start: 2012

REACTIONS (3)
  - Nicotine dependence [Not Recovered/Not Resolved]
  - Intentional drug misuse [Unknown]
  - Overdose [Unknown]
